FAERS Safety Report 16289746 (Version 4)
Quarter: 2019Q3

REPORT INFORMATION
  Report Type: Report from Study
  Country: PL (occurrence: PL)
  Receive Date: 20190509
  Receipt Date: 20190731
  Transmission Date: 20191004
  Serious: Yes (Death, Hospitalization)
  Sender: FDA-Public Use
  Company Number: PL-ROCHE-2309005

PATIENT
  Age: 71 Year
  Sex: Female
  Weight: 78.5 kg

DRUGS (6)
  1. PERFALGAN [Concomitant]
     Active Substance: ACETAMINOPHEN
     Indication: PROPHYLAXIS
     Route: 042
     Dates: start: 20190423, end: 20190423
  2. CLEMASTINUM [CLEMASTINE] [Concomitant]
     Route: 065
     Dates: start: 20190423, end: 20190423
  3. OBINUTUZUMAB. [Suspect]
     Active Substance: OBINUTUZUMAB
     Dosage: ON 26/APR/2019 TREATMENT DISCONTINUED
     Route: 042
     Dates: start: 20190425, end: 20190426
  4. OBINUTUZUMAB. [Suspect]
     Active Substance: OBINUTUZUMAB
     Indication: B-CELL LYMPHOMA
     Route: 042
     Dates: start: 20190423
  5. NORADRENALINE [NOREPINEPHRINE] [Concomitant]
     Active Substance: NOREPINEPHRINE
     Route: 065
  6. SIOFOR [Concomitant]
     Active Substance: METFORMIN HYDROCHLORIDE
     Indication: DIABETES MELLITUS
     Route: 048
     Dates: start: 2014

REACTIONS (2)
  - Anaphylactic reaction [Fatal]
  - Tumour lysis syndrome [Not Recovered/Not Resolved]

NARRATIVE: CASE EVENT DATE: 20190424
